FAERS Safety Report 6310405-X (Version None)
Quarter: 2009Q3

REPORT INFORMATION
  Report Type: 
  Country: None (occurrence: None)
  Receive Date: 20090814
  Receipt Date: 20090804
  Transmission Date: 20100115
  Serious: Yes (Other)
  Sender: FDA-Public Use
  Company Number: US-PFIZER INC-2009233655

PATIENT
  Age: 22 Year
  Sex: Female
  Weight: 97.506 kg

DRUGS (2)
  1. GEODON [Suspect]
     Indication: IMPULSE-CONTROL DISORDER
     Dosage: 80 MG, 2X/DAY
     Dates: start: 20060101
  2. ZOLOFT [Suspect]
     Dosage: 50 MG, 1X/DAY

REACTIONS (1)
  - POLYCYSTIC OVARIES [None]
